FAERS Safety Report 4963303-8 (Version None)
Quarter: 2006Q2

REPORT INFORMATION
  Report Type: 
  Country: None (occurrence: None)
  Receive Date: 20060404
  Receipt Date: 20060404
  Transmission Date: 20061013
  Serious: Yes (Other)
  Sender: FDA-Public Use
  Company Number: None

PATIENT
  Age: 59 Year

DRUGS (6)
  1. SYMBYAX [Suspect]
     Indication: DEPRESSION
     Dates: start: 20050301, end: 20060301
  2. SYMBYAX [Suspect]
     Indication: HALLUCINATION
     Dates: start: 20050301, end: 20060301
  3. HYDROCHLOROTHIAZIDE [Concomitant]
  4. ZOCOR [Concomitant]
  5. NIFEDIPINE [Concomitant]
  6. FLOVENT [Concomitant]

REACTIONS (1)
  - PAROTITIS [None]
